FAERS Safety Report 5736929-1 (Version None)
Quarter: 2008Q2

REPORT INFORMATION
  Report Type: 
  Country: None (occurrence: None)
  Receive Date: 20080509
  Receipt Date: 20080430
  Transmission Date: 20081010
  Serious: Yes (Life-Threatening, Hospitalization)
  Sender: FDA-Public Use
  Company Number: GXKR2008GB04091

PATIENT
  Age: 39 Year
  Sex: Male

DRUGS (4)
  1. SALBUTAMOL (NGX)(SALBUTAMOL) UNKNOWN [Suspect]
     Indication: ASTHMA
     Dosage: INCREASINGLY FREQUENT DOSES, INHALATION; 5 MG, 5 DOSES, INHALATION; 250 UG, IV BOLUS
     Route: 055
  2. PREDNISOLONE [Concomitant]
  3. AMOXICILLIN [Concomitant]
  4. CORTICOSTEROID NOS (CORTICOSTEROID NOS) [Concomitant]

REACTIONS (7)
  - BLOOD GLUCOSE ABNORMAL [None]
  - BLOOD PRESSURE DIASTOLIC INCREASED [None]
  - HEART RATE INCREASED [None]
  - HYPERCAPNIA [None]
  - LACTIC ACIDOSIS [None]
  - RESPIRATORY ACIDOSIS [None]
  - RESPIRATORY FAILURE [None]
